FAERS Safety Report 5238582-2 (Version None)
Quarter: 2007Q1

REPORT INFORMATION
  Report Type: 
  Country: None (occurrence: None)
  Receive Date: 20070215
  Receipt Date: 20070209
  Transmission Date: 20070707
  Serious: Yes (Other)
  Sender: FDA-Public Use
  Company Number: HQWYE025815DEC05

PATIENT
  Sex: Male
  Weight: 56 kg

DRUGS (23)
  1. MYLOTARG [Suspect]
     Indication: ACUTE MYELOID LEUKAEMIA RECURRENT
     Dosage: 16 MG (9 MG/M2/DAY)
     Route: 041
     Dates: start: 20051130, end: 20051130
  2. AMIKACIN SULFATE [Concomitant]
     Indication: BACTERIAL INFECTION
     Route: 041
     Dates: start: 20051119, end: 20051207
  3. FUNGUARD [Concomitant]
     Indication: FUNGAL INFECTION
     Route: 041
     Dates: start: 20051119
  4. FUNGUARD [Concomitant]
     Indication: BACTERIAL INFECTION
  5. TIENAM [Concomitant]
     Indication: BACTERIAL INFECTION
     Route: 041
     Dates: start: 20051214
  6. OZEX [Concomitant]
     Indication: PROPHYLAXIS
     Route: 048
     Dates: start: 20051127
  7. BAKTAR [Concomitant]
     Indication: PROPHYLAXIS
     Route: 048
     Dates: start: 20051127
  8. ITRACONAZOLE [Concomitant]
     Indication: PROPHYLAXIS
     Route: 048
     Dates: start: 20051127
  9. URSO [Concomitant]
     Indication: PROPHYLAXIS
     Route: 048
     Dates: start: 20051127
  10. CARBENIN [Concomitant]
     Indication: BACTERIAL INFECTION
     Route: 041
     Dates: start: 20051119, end: 20051127
  11. VFEND [Suspect]
     Indication: BACTERIAL INFECTION
     Route: 041
     Dates: start: 20051207, end: 20051209
  12. HABEKACIN [Concomitant]
     Indication: BACTERIAL INFECTION
     Route: 041
     Dates: start: 20051207, end: 20051209
  13. TARGOCID [Concomitant]
     Indication: BACTERIAL INFECTION
     Route: 041
     Dates: start: 20051127, end: 20051222
  14. TARGOCID [Concomitant]
     Route: 041
     Dates: start: 20051224
  15. VANCOMYCIN HYDROCHLORIDE [Concomitant]
     Indication: BACTERIAL INFECTION
     Route: 041
     Dates: start: 20051222, end: 20051224
  16. STRONG NEO-MINOPHAGEN C [Concomitant]
     Indication: PROPHYLAXIS
     Route: 041
     Dates: start: 20051127, end: 20051209
  17. ALPROSTADIL [Concomitant]
     Indication: VENOOCCLUSIVE LIVER DISEASE
     Dosage: ^LIPLE^ 10 MCG/DAY
     Route: 042
     Dates: start: 20051202
  18. ZOVIRAX [Concomitant]
     Indication: HERPES SIMPLEX
     Route: 041
     Dates: start: 20060124, end: 20060131
  19. GASTER [Concomitant]
     Indication: PROPHYLAXIS
     Route: 042
     Dates: start: 20051127
  20. DALACIN-S [Concomitant]
     Indication: BACTERIAL INFECTION
     Route: 041
     Dates: start: 20060121, end: 20060131
  21. FUNGIZONE [Concomitant]
     Indication: FUNGAL INFECTION
     Route: 041
     Dates: start: 20060105
  22. MINOCYCLINE HCL [Concomitant]
     Indication: BACTERIAL INFECTION
     Route: 041
     Dates: start: 20051119, end: 20051207
  23. MEROPEN [Concomitant]
     Indication: BACTERIAL INFECTION
     Route: 041
     Dates: start: 20051127, end: 20051204

REACTIONS (16)
  - ABDOMINAL PAIN [None]
  - ACUTE MYELOID LEUKAEMIA [None]
  - ANOREXIA [None]
  - DEHYDRATION [None]
  - DISEASE PROGRESSION [None]
  - FIBRIN DEGRADATION PRODUCTS INCREASED [None]
  - HEPATITIS [None]
  - HICCUPS [None]
  - IMMUNOSUPPRESSION [None]
  - INFECTION [None]
  - INTERSTITIAL LUNG DISEASE [None]
  - LEUKAEMIC INFILTRATION HEPATIC [None]
  - NEUTROPENIC INFECTION [None]
  - VENOOCCLUSIVE LIVER DISEASE [None]
  - WEIGHT DECREASED [None]
  - WEIGHT INCREASED [None]
